FAERS Safety Report 8186165-7 (Version None)
Quarter: 2012Q1

REPORT INFORMATION
  Report Type: 
  Country: None (occurrence: None)
  Receive Date: 20120306
  Receipt Date: 20120229
  Transmission Date: 20120608
  Serious: No
  Sender: FDA-Public Use
  Company Number: US-PFIZER INC-2012054805

PATIENT
  Age: 13 Year
  Sex: Female

DRUGS (5)
  1. ZANTAC [Concomitant]
     Dosage: UNK
  2. ZOFRAN [Concomitant]
     Dosage: UNK
  3. TORISEL [Suspect]
     Dosage: UNK
  4. BENADRYL [Concomitant]
     Dosage: UNK
  5. ACETAMINOPHEN [Concomitant]
     Dosage: UNK

REACTIONS (1)
  - HYPERTENSION [None]
